FAERS Safety Report 21330648 (Version 1)
Quarter: 2022Q3

REPORT INFORMATION
  Report Type: Spontaneous
  Country: US (occurrence: None)
  Receive Date: 20220913
  Receipt Date: 20220913
  Transmission Date: 20221027
  Serious: Yes (Hospitalization)
  Sender: FDA-Public Use
  Company Number: None

PATIENT
  Age: 63 Year
  Sex: Male
  Weight: 67.59 kg

DRUGS (2)
  1. METHIMAZOLE [Suspect]
     Active Substance: METHIMAZOLE
     Indication: Hyperthyroidism
     Dosage: FREQUENCY : DAILY;?
     Route: 048
     Dates: start: 20181227, end: 20220506
  2. METHIMAZOLE [Suspect]
     Active Substance: METHIMAZOLE
     Indication: Toxic goitre

REACTIONS (9)
  - Liver injury [None]
  - Acute hepatic failure [None]
  - Hepatic encephalopathy [None]
  - Respiratory distress [None]
  - Lactic acidosis [None]
  - Hyperthyroidism [None]
  - Vascular occlusion [None]
  - Ischaemia [None]
  - Drug-induced liver injury [None]

NARRATIVE: CASE EVENT DATE: 20220506
